FAERS Safety Report 18347840 (Version 2)
Quarter: 2022Q1

REPORT INFORMATION
  Report Type: Spontaneous
  Country: CA (occurrence: CA)
  Receive Date: 20201006
  Receipt Date: 20220124
  Transmission Date: 20220423
  Serious: Yes (Other)
  Sender: FDA-Public Use
  Company Number: None

PATIENT
  Weight: 2 kg

DRUGS (16)
  1. ONDANSETRON [Suspect]
     Active Substance: ONDANSETRON
     Route: 064
  2. PANTOPRAZOLE [Suspect]
     Active Substance: PANTOPRAZOLE
     Dosage: NOT SPECIFIED
     Route: 064
  3. ASPIRIN [Suspect]
     Active Substance: ASPIRIN
     Dosage: NOT SPECIFIED
     Route: 064
  4. DIPHENHYDRAMINE [Suspect]
     Active Substance: DIPHENHYDRAMINE
     Route: 064
  5. DOXYCYCLINE HYCLATE [Suspect]
     Active Substance: DOXYCYCLINE HYCLATE
     Dosage: NOT SPECIFIED
     Route: 064
  6. HYDROMORPHONE HYDROCHLORIDE [Suspect]
     Active Substance: HYDROMORPHONE HYDROCHLORIDE
     Dosage: SOLUTION INTRAMUSCULAR
     Route: 064
  7. HYDROXYZINE [Suspect]
     Active Substance: HYDROXYZINE HYDROCHLORIDE
     Route: 064
  8. INSULIN NOS [Suspect]
     Active Substance: INSULIN NOS
     Dosage: NOT SPECIFIED
     Route: 064
  9. METOCLOPRAMIDE [Suspect]
     Active Substance: METOCLOPRAMIDE
     Route: 064
  10. NOVORAPID [Suspect]
     Active Substance: INSULIN ASPART
     Route: 064
  11. OXAZEPAM [Suspect]
     Active Substance: OXAZEPAM
     Route: 064
  12. SUMATRIPTAN [Suspect]
     Active Substance: SUMATRIPTAN
     Dosage: NOT SPECIFIED
     Route: 064
  13. COSYNTROPIN [Suspect]
     Active Substance: COSYNTROPIN
     Dosage: SUSPENSION INTRAMUSCULAR
     Route: 064
  14. COSYNTROPIN HEXAACETATE [Suspect]
     Active Substance: COSYNTROPIN HEXAACETATE
     Route: 064
  15. THIAMINE HYDROCHLORIDE [Suspect]
     Active Substance: THIAMINE HYDROCHLORIDE
     Dosage: NOT SPECIFIED
     Route: 064
  16. COSYNTROPIN HEXAACETATE [Suspect]
     Active Substance: COSYNTROPIN HEXAACETATE
     Dosage: SUSPENSION INTRAMUSCULAR
     Route: 064

REACTIONS (3)
  - Foetal exposure during pregnancy [Unknown]
  - Foetal growth restriction [Unknown]
  - Hypoglycaemia [Recovered/Resolved]
